FAERS Safety Report 8086100-6 (Version None)
Quarter: 2012Q1

REPORT INFORMATION
  Report Type: 
  Country: None (occurrence: None)
  Receive Date: 20120128
  Receipt Date: 20110520
  Transmission Date: 20120608
  Serious: No
  Sender: FDA-Public Use
  Company Number: US-ABBOTT-11P-163-0719018-00

PATIENT
  Age: 47 Year
  Sex: Female

DRUGS (14)
  1. ACYCLOVIR [Concomitant]
     Indication: ORAL HERPES
  2. HUMIRA [Suspect]
  3. URSODIOL [Concomitant]
     Indication: LIVER DISORDER
  4. IRON [Concomitant]
     Indication: HAEMOGLOBIN DECREASED
     Dosage: DAILY
  5. EFFEXOR [Concomitant]
     Indication: PRODUCT USED FOR UNKNOWN INDICATION
  6. METFFORMIN HYDROCHLORIDE [Concomitant]
     Indication: PRODUCT USED FOR UNKNOWN INDICATION
  7. ASPIRIN [Concomitant]
     Indication: PRODUCT USED FOR UNKNOWN INDICATION
     Dosage: 80MG DAILY
  8. LIPITOR [Concomitant]
     Indication: BLOOD CHOLESTEROL
  9. PRILOSEC [Concomitant]
     Indication: GASTROOESOPHAGEAL REFLUX DISEASE
     Dosage: DAILY
  10. HUMIRA [Suspect]
     Indication: PSORIASIS
     Dates: start: 20100401
  11. UNKNOWN MEDICATIONS [Concomitant]
     Indication: PSORIASIS
  12. JANUVIA [Concomitant]
     Indication: TYPE 2 DIABETES MELLITUS
  13. EFFEXOR [Concomitant]
     Indication: DEPRESSION
  14. LISINOPRIL [Concomitant]
     Indication: RENAL IMPAIRMENT

REACTIONS (4)
  - BLOOD GLUCOSE ABNORMAL [None]
  - DRUG INEFFECTIVE [None]
  - PSORIASIS [None]
  - DEPRESSION [None]
